FAERS Safety Report 15169484 (Version 1)
Quarter: 2018Q3

REPORT INFORMATION
  Report Type: Spontaneous
  Country: ES (occurrence: ES)
  Receive Date: 20180720
  Receipt Date: 20180720
  Transmission Date: 20181010
  Serious: Yes (Other)
  Sender: FDA-Public Use
  Company Number: ES-TEVA-2018-ES-929405

PATIENT
  Age: 48 Year
  Sex: Female

DRUGS (2)
  1. FLUMAZENIL (1745A) [Suspect]
     Active Substance: FLUMAZENIL
     Route: 042
     Dates: start: 20180606, end: 20180606
  2. EPINEFRINA (813A) [Suspect]
     Active Substance: EPINEPHRINE
     Route: 042
     Dates: start: 20180606, end: 20180606

REACTIONS (3)
  - Tachycardia [Recovered/Resolved]
  - Wrong drug [Recovered/Resolved]
  - Back pain [Recovered/Resolved]

NARRATIVE: CASE EVENT DATE: 20180606
